FAERS Safety Report 4344399-3 (Version None)
Quarter: 2004Q2

REPORT INFORMATION
  Report Type: 
  Country: None (occurrence: None)
  Receive Date: 20040421
  Receipt Date: 20040421
  Transmission Date: 20050107
  Serious: Yes (Hospitalization)
  Sender: FDA-Public Use
  Company Number: None

PATIENT
  Age: 81 Year
  Sex: Male
  Weight: 65.5 kg

DRUGS (11)
  1. WARFARIN SODIUM [Suspect]
     Dosage: 5 MG PO DAILY [CHRONIC]
     Route: 048
  2. PAXIL [Concomitant]
  3. METOPROLOL [Concomitant]
  4. FLOMAX [Concomitant]
  5. LIPITOR [Concomitant]
  6. LISINOPRIL [Concomitant]
  7. PROTONIX [Concomitant]
  8. ALPRAZOLAM [Concomitant]
  9. MOM [Concomitant]
  10. BISACODYL [Concomitant]
  11. TYLENOL (CAPLET) [Concomitant]

REACTIONS (7)
  - FALL [None]
  - HAEMATOCRIT DECREASED [None]
  - HAEMOGLOBIN DECREASED [None]
  - HAEMORRHAGE [None]
  - INTERNATIONAL NORMALISED RATIO INCREASED [None]
  - POLYP [None]
  - RECTAL HAEMORRHAGE [None]
